FAERS Safety Report 17189433 (Version 1)
Quarter: 2019Q4

REPORT INFORMATION
  Report Type: Report from Study
  Country: US (occurrence: US)
  Receive Date: 20191223
  Receipt Date: 20191223
  Transmission Date: 20200122
  Serious: Yes (Hospitalization, Other)
  Sender: FDA-Public Use
  Company Number: US-BRISTOL-MYERS SQUIBB COMPANY-BMS-2019-119411

PATIENT
  Age: 53 Year
  Sex: Male
  Weight: 67.4 kg

DRUGS (2)
  1. NIVOLUMAB [Suspect]
     Active Substance: NIVOLUMAB
     Indication: RENAL CELL CARCINOMA
     Dosage: 202 MILLIGRAM, Q3WK
     Route: 042
     Dates: start: 20190802, end: 20191213
  2. IPILIMUMAB [Suspect]
     Active Substance: IPILIMUMAB
     Indication: RENAL CELL CARCINOMA
     Dosage: 67 MILLIGRAM, Q3WK
     Route: 042
     Dates: start: 20191114, end: 20191213

REACTIONS (3)
  - Brain oedema [Unknown]
  - Blood bilirubin increased [Recovered/Resolved with Sequelae]
  - Central nervous system lesion [Unknown]

NARRATIVE: CASE EVENT DATE: 20191210
